FAERS Safety Report 7649890-X (Version None)
Quarter: 2011Q3

REPORT INFORMATION
  Report Type: 
  Country: None (occurrence: None)
  Receive Date: 20110802
  Receipt Date: 20110718
  Transmission Date: 20111222
  Serious: Yes (Hospitalization, Other)
  Sender: FDA-Public Use
  Company Number: US-ELI_LILLY_AND_COMPANY-US200908004791

PATIENT
  Sex: Female

DRUGS (10)
  1. DILAUDID [Concomitant]
  2. PREVACID [Concomitant]
  3. ASCORBIC ACID [Concomitant]
  4. FORTEO [Suspect]
     Indication: OSTEOPOROSIS
     Dosage: UNK, UNKNOWN
     Dates: start: 20090715
  5. MULTI-VITAMIN [Concomitant]
  6. CYMBALTA [Suspect]
     Indication: DEPRESSION
     Dosage: UNK, UNKNOWN
     Dates: start: 20060101
  7. BACLOFEN [Concomitant]
  8. VITAMIN D [Concomitant]
  9. KLONOPIN [Concomitant]
  10. CALCIUM ACETATE [Concomitant]

REACTIONS (3)
  - SURGERY [None]
  - BLOOD CALCIUM INCREASED [None]
  - LIMB INJURY [None]
